FAERS Safety Report 9348294 (Version 2)
Quarter: 2013Q3

REPORT INFORMATION
  Report Type: Spontaneous
  Country: US (occurrence: US)
  Receive Date: 20130614
  Receipt Date: 20130703
  Transmission Date: 20140515
  Serious: Yes (Death, Hospitalization)
  Sender: FDA-Public Use
  Company Number: US-INCYTE CORPORATION-2013IN000922

PATIENT
  Age: 80 Year
  Sex: Female
  Weight: 45 kg

DRUGS (2)
  1. JAKAFI [Suspect]
     Indication: LYMPHATIC DISORDER
     Dosage: 5 MG, BID
     Route: 048
     Dates: start: 20120309
  2. PROCRIT [Concomitant]

REACTIONS (3)
  - Death [Fatal]
  - Hospitalisation [Unknown]
  - Viral infection [Unknown]
